FAERS Safety Report 6543211-1 (Version None)
Quarter: 2010Q1

REPORT INFORMATION
  Report Type: 
  Country: None (occurrence: None)
  Receive Date: 20100120
  Receipt Date: 20100115
  Transmission Date: 20100710
  Serious: Yes (Hospitalization)
  Sender: FDA-Public Use
  Company Number: US-B.I. PHARMACEUTICALS,INC./RIDGEFIELD-2010-BP-00555BP

PATIENT
  Sex: Male

DRUGS (9)
  1. SPIRIVA [Suspect]
     Indication: EMPHYSEMA
     Dosage: 18 MCG
     Route: 055
     Dates: start: 20090101
  2. COREG [Concomitant]
     Indication: CARDIAC FAILURE
  3. TRICOR [Concomitant]
     Indication: BLOOD CHOLESTEROL INCREASED
  4. VYTORIN [Concomitant]
     Indication: BLOOD CHOLESTEROL INCREASED
  5. LASIX [Concomitant]
     Indication: CARDIAC FAILURE
  6. LEVOTHYROXINE SODIUM [Concomitant]
     Indication: THYROID DISORDER
  7. ASPIRIN [Concomitant]
     Indication: PROPHYLAXIS
  8. PLAVIX [Concomitant]
     Indication: ANTICOAGULANT THERAPY
  9. MONOPRIL [Concomitant]
     Indication: HYPERTENSION

REACTIONS (2)
  - CANDIDIASIS [None]
  - PNEUMONIA [None]
